FAERS Safety Report 22214591 (Version 2)
Quarter: 2023Q2

REPORT INFORMATION
  Report Type: Spontaneous
  Country: FR (occurrence: FR)
  Receive Date: 20230415
  Receipt Date: 20230502
  Transmission Date: 20230722
  Serious: Yes (Hospitalization, Other)
  Sender: FDA-Public Use
  Company Number: FR-ROCHE-3315852

PATIENT
  Sex: Male

DRUGS (7)
  1. CAPECITABINE [Suspect]
     Active Substance: CAPECITABINE
     Indication: Pancreatic neuroendocrine tumour
     Dosage: 42 GRAM
     Route: 048
     Dates: start: 20220329, end: 20220802
  2. BEVACIZUMAB [Suspect]
     Active Substance: BEVACIZUMAB
     Indication: Pancreatic neuroendocrine tumour
     Dosage: 450 MILLIGRAM
     Route: 042
     Dates: start: 20220329
  3. TEMOZOLOMIDE [Suspect]
     Active Substance: TEMOZOLOMIDE
     Indication: Pancreatic neuroendocrine tumour
     Dosage: 2100 MILLIGRAM
     Route: 048
     Dates: start: 20220407
  4. CLOBAZAM [Concomitant]
     Active Substance: CLOBAZAM
     Indication: Epilepsy
     Dosage: 5 MILLIGRAM (ONCE EVERY 3 DAYS)
     Route: 065
     Dates: start: 20220805, end: 20220828
  5. ESOMEPRAZOLE [Concomitant]
     Active Substance: ESOMEPRAZOLE
     Indication: Product used for unknown indication
     Dosage: 20 MILLIGRAM
     Route: 048
  6. LOSARTAN [Concomitant]
     Active Substance: LOSARTAN
     Indication: Hypertension
     Dosage: 100 MILLIGRAM
     Route: 048
  7. NEBIVOLOL [Concomitant]
     Active Substance: NEBIVOLOL
     Indication: Hypertension
     Dosage: 5 MILLIGRAM
     Route: 048

REACTIONS (4)
  - Akinesia [Recovered/Resolved]
  - Generalised tonic-clonic seizure [Recovered/Resolved]
  - Aphasia [Recovered/Resolved]
  - Product use in unapproved indication [Recovered/Resolved]

NARRATIVE: CASE EVENT DATE: 20220329
